FAERS Safety Report 11950651 (Version 1)
Quarter: 2016Q1

REPORT INFORMATION
  Report Type: Spontaneous
  Country: US (occurrence: None)
  Receive Date: 20160121
  Receipt Date: 20160121
  Transmission Date: 20160526
  Serious: Yes (Hospitalization)
  Sender: FDA-Public Use
  Company Number: CA-ALSI-201500328

PATIENT
  Age: 79 Year
  Sex: Male
  Weight: 91 kg

DRUGS (1)
  1. OXYGEN USP OXYGEN [Suspect]
     Active Substance: OXYGEN
     Indication: CHRONIC OBSTRUCTIVE PULMONARY DISEASE
     Dosage: 3 L ONCE A MINUTE RESPIRATORY
     Route: 055
     Dates: start: 20140605

REACTIONS (2)
  - Wrong technique in product usage process [None]
  - Thermal burn [None]
